FAERS Safety Report 9457867 (Version 1)
Quarter: 2013Q3

REPORT INFORMATION
  Report Type: Spontaneous
  Country: GB (occurrence: GB)
  Receive Date: 20130814
  Receipt Date: 20130814
  Transmission Date: 20140515
  Serious: Yes (Hospitalization)
  Sender: FDA-Public Use
  Company Number: GB-MERCK-1308GBR004075

PATIENT
  Age: 72 Year
  Sex: Female

DRUGS (13)
  1. SIMVASTATIN [Suspect]
     Dosage: 40 MG, 1/1 DAYS
     Route: 048
  2. BUMETANIDE [Suspect]
     Dosage: 7 MG, 1/1 DAYS
  3. METYRAPONE [Suspect]
     Indication: CUSHING^S SYNDROME
     Dosage: UNK
     Dates: start: 20080522, end: 20080524
  4. METYRAPONE [Suspect]
     Dosage: 1 G, 1/1 DAYS
     Dates: start: 20080525
  5. TRAMADOL HYDROCHLORIDE [Suspect]
     Dosage: 50 MG, 3/1 DAYS
  6. BENDROFLUMETHIAZIDE [Concomitant]
     Dosage: 2.5 MG, 1/1 DAYS
  7. CARBOCYSTEINE [Concomitant]
     Dosage: 150 MG, 3/1 DAYS
  8. DIGOXIN [Concomitant]
     Dosage: 125 MG, 1/1 DAYS
  9. DILTIAZEM HYDROCHLORIDE [Concomitant]
  10. ISOSORBIDE MONONITRATE [Concomitant]
     Dosage: 20 MG, 2/1 DAYS
  11. LOSARTAN POTASSIUM 12,5 MG [Concomitant]
     Dosage: 100 MG, 1/1 DAYS
  12. MIXTARD [Concomitant]
  13. WARFARIN [Concomitant]

REACTIONS (2)
  - Oedema peripheral [Recovered/Resolved]
  - Dyspnoea [Recovered/Resolved with Sequelae]
